FAERS Safety Report 5534281-8 (Version None)
Quarter: 2007Q4

REPORT INFORMATION
  Report Type: 
  Country: None (occurrence: None)
  Receive Date: 20071203
  Receipt Date: 20071203
  Transmission Date: 20080405
  Serious: No
  Sender: FDA-Public Use
  Company Number: None

PATIENT
  Age: 30 Year
  Sex: Female
  Weight: 103.4201 kg

DRUGS (1)
  1. FLUTICASONE 0.05MG SPRAY [Suspect]
     Indication: RHINITIS ALLERGIC
     Dosage: 2 SPRAYS EACH NOSTRIL DAILY
     Dates: start: 20070901

REACTIONS (4)
  - ERYTHEMA [None]
  - NASAL DISCOMFORT [None]
  - PHARMACEUTICAL PRODUCT COMPLAINT [None]
  - RASH [None]
